FAERS Safety Report 6554662-3 (Version None)
Quarter: 2010Q1

REPORT INFORMATION
  Report Type: 
  Country: None (occurrence: None)
  Receive Date: 20100122
  Receipt Date: 20100108
  Transmission Date: 20100710
  Serious: Yes (Other)
  Sender: FDA-Public Use
  Company Number: JPI-P-009506

PATIENT
  Age: 23 Year
  Sex: Female

DRUGS (3)
  1. XYREM [Suspect]
     Indication: CATAPLEXY
     Dosage: (4.5 GM, 1 D), ORAL; 9 GM (9 GM, 1 IN 1 D), ORAL
     Route: 048
     Dates: start: 20091102, end: 20091102
  2. XYREM [Suspect]
     Indication: CATAPLEXY
     Dosage: (4.5 GM, 1 D), ORAL; 9 GM (9 GM, 1 IN 1 D), ORAL
     Route: 048
     Dates: start: 20090815
  3. IMIPRAMINE HYDROCHLORIDE [Concomitant]

REACTIONS (2)
  - INCORRECT DOSE ADMINISTERED [None]
  - RESPIRATORY DISORDER [None]
